FAERS Safety Report 8594784-9 (Version None)
Quarter: 2012Q3

REPORT INFORMATION
  Report Type: 
  Country: None (occurrence: None)
  Receive Date: 20120815
  Receipt Date: 20120810
  Transmission Date: 20120928
  Serious: Yes (Other)
  Sender: FDA-Public Use
  Company Number: US-AMGEN-USASP2011015103

PATIENT
  Age: 45 Year
  Sex: Female
  Weight: 96 kg

DRUGS (5)
  1. ENBREL [Suspect]
     Indication: POLYARTHRITIS
     Dosage: 50 MG, QWK
     Dates: start: 20080501
  2. SULFASALAZINE [Concomitant]
     Dosage: 0.5 G, BID
  3. ENBREL [Suspect]
     Indication: RHEUMATOID ARTHRITIS
  4. SULFASALAZINE [Concomitant]
     Dosage: 1.5 G, BID
  5. METHOTREXATE [Concomitant]
     Dosage: 12.5 MG, QWK

REACTIONS (15)
  - RENAL IMPAIRMENT [None]
  - CARDIAC FAILURE CONGESTIVE [None]
  - ASTHENIA [None]
  - TOOTHACHE [None]
  - ALANINE AMINOTRANSFERASE INCREASED [None]
  - GINGIVAL PAIN [None]
  - CHEST DISCOMFORT [None]
  - SALIVA ALTERED [None]
  - CARDIOMYOPATHY [None]
  - FATIGUE [None]
  - COUGH [None]
  - EXERTIONAL HEADACHE [None]
  - VISUAL IMPAIRMENT [None]
  - DYSPNOEA [None]
  - INJECTION SITE PAIN [None]
